FAERS Safety Report 8451083-3 (Version None)
Quarter: 2012Q2

REPORT INFORMATION
  Report Type: 
  Country: None (occurrence: None)
  Receive Date: 20120613
  Receipt Date: 20120604
  Transmission Date: 20120825
  Serious: Yes (Other)
  Sender: FDA-Public Use
  Company Number: 2012SA040204

PATIENT
  Age: 46 Year
  Sex: Female

DRUGS (1)
  1. MENTHOL [Suspect]
     Indication: NECK PAIN
     Dosage: UNKNOWN; UNKNOWN
     Dates: start: 20120604, end: 20120604

REACTIONS (1)
  - APPLICATION SITE PAIN [None]
